FAERS Safety Report 12220721 (Version 3)
Quarter: 2016Q2

REPORT INFORMATION
  Report Type: Spontaneous
  Country: US (occurrence: US)
  Receive Date: 20160330
  Receipt Date: 20160513
  Transmission Date: 20160815
  Serious: Yes (Other)
  Sender: FDA-Public Use
  Company Number: US-009507513-1603USA012246

PATIENT
  Sex: Female

DRUGS (1)
  1. DULERA [Suspect]
     Active Substance: FORMOTEROL FUMARATE DIHYDRATE\MOMETASONE FUROATE
     Dosage: 100/5 MICROGRAM TWICE DAILY
     Route: 055

REACTIONS (3)
  - Rheumatoid arthritis [Unknown]
  - Product quality issue [Unknown]
  - Drug dose omission [Unknown]
